FAERS Safety Report 13093037 (Version 1)
Quarter: 2017Q1

REPORT INFORMATION
  Report Type: Spontaneous
  Country: US (occurrence: US)
  Receive Date: 20170106
  Receipt Date: 20170106
  Transmission Date: 20170428
  Serious: Yes (Hospitalization, Other)
  Sender: FDA-Public Use
  Company Number: US-ASTRAZENECA-2017SE00343

PATIENT
  Age: 68 Year
  Sex: Female
  Weight: 88.5 kg

DRUGS (13)
  1. ATIVAN [Concomitant]
     Active Substance: LORAZEPAM
     Indication: ANXIETY
     Dosage: 1.0MG AS REQUIRED
     Route: 048
  2. COZAAR [Concomitant]
     Active Substance: LOSARTAN POTASSIUM
     Route: 048
  3. TAXOTERE [Concomitant]
     Active Substance: DOCETAXEL
     Indication: OVARIAN CANCER STAGE III
     Dosage: 6 CYCLES
     Dates: start: 201511
  4. LYNPARZA [Suspect]
     Active Substance: OLAPARIB
     Indication: BRCA2 GENE MUTATION
     Route: 048
     Dates: start: 20160822, end: 20161211
  5. ZOFRAN [Concomitant]
     Active Substance: ONDANSETRON HYDROCHLORIDE
     Indication: NAUSEA
     Dosage: 8.0MG AS REQUIRED
     Route: 048
  6. CARBOPLATIN. [Concomitant]
     Active Substance: CARBOPLATIN
     Indication: OVARIAN CANCER STAGE III
     Dosage: 6 CYCLES
  7. TOPROL XL [Suspect]
     Active Substance: METOPROLOL SUCCINATE
     Indication: HYPERTENSION
     Route: 048
  8. TOPROL XL [Suspect]
     Active Substance: METOPROLOL SUCCINATE
     Indication: HYPERTENSION
     Dosage: GENERIC, 50 MG DAILY
     Route: 065
  9. SIMETHICONE (DIMETHICONE) [Concomitant]
     Active Substance: DIMETHICONE
     Route: 048
  10. LYNPARZA [Suspect]
     Active Substance: OLAPARIB
     Indication: OVARIAN CANCER RECURRENT
     Route: 048
     Dates: start: 20160822, end: 20161211
  11. GEMZAR [Concomitant]
     Active Substance: GEMCITABINE HYDROCHLORIDE
     Indication: OVARIAN CANCER STAGE III
     Dosage: 6 CYCLES
     Dates: start: 201003
  12. PROTONIX [Concomitant]
     Active Substance: PANTOPRAZOLE SODIUM
     Route: 048
  13. VITAMIN D3 [Concomitant]
     Active Substance: CHOLECALCIFEROL
     Route: 048

REACTIONS (5)
  - BRCA2 gene mutation [Unknown]
  - Ovarian cancer stage III [Not Recovered/Not Resolved]
  - Blood cholesterol increased [Unknown]
  - Embolic cerebral infarction [Unknown]
  - Gastrooesophageal reflux disease [Unknown]

NARRATIVE: CASE EVENT DATE: 2009
